FAERS Safety Report 8761670 (Version 3)
Quarter: 2012Q4

REPORT INFORMATION
  Report Type: Spontaneous
  Country: DE (occurrence: None)
  Receive Date: 20120821
  Receipt Date: 20120910
  Transmission Date: 20130627
  Serious: Yes (Other)
  Sender: FDA-Public Use
  Company Number: AUR-APL-2012-03567

PATIENT
  Age: 36 Year
  Sex: Female
  Weight: 104 kg

DRUGS (5)
  1. RAMIPRIL (RAMIPRIL) [Suspect]
     Indication: HYPERTENSION
     Dosage: until week 12-14 only
     Route: 048
  2. RAMIPRIL (RAMIPRIL) [Suspect]
     Indication: HYPERTENSION
     Route: 048
  3. NEBILET [Suspect]
     Route: 048
  4. L-THYROX (LEVOTHYROXINE SODIUM) [Concomitant]
  5. VITAVERLAN (FOLIC ACID) [Concomitant]

REACTIONS (7)
  - Hypothyroidism [None]
  - Gestational diabetes [None]
  - Oligohydramnios [None]
  - Exposure during pregnancy [None]
  - Caesarean section [None]
  - Premature rupture of membranes [None]
  - Breech presentation [None]
